FAERS Safety Report 12290939 (Version 2)
Quarter: 2016Q2

REPORT INFORMATION
  Report Type: Spontaneous
  Country: US (occurrence: US)
  Receive Date: 20160421
  Receipt Date: 20160505
  Transmission Date: 20160815
  Serious: No
  Sender: FDA-Public Use
  Company Number: US-009507513-1604USA005330

PATIENT
  Age: 77 Year
  Sex: Male

DRUGS (3)
  1. PRINIVIL [Concomitant]
     Active Substance: LISINOPRIL
     Route: 048
  2. HYDROCHLORTHIAZID [Concomitant]
     Active Substance: HYDROCHLOROTHIAZIDE
  3. MEVACOR [Suspect]
     Active Substance: LOVASTATIN
     Indication: BLOOD CHOLESTEROL INCREASED
     Dosage: 80 MG, QD
     Dates: start: 2009, end: 2013

REACTIONS (3)
  - Weight increased [Unknown]
  - Cachexia [Unknown]
  - Gait disturbance [Recovering/Resolving]
